FAERS Safety Report 5605559-4 (Version None)
Quarter: 2008Q1

REPORT INFORMATION
  Report Type: 
  Country: None (occurrence: None)
  Receive Date: 20080129
  Receipt Date: 20080116
  Transmission Date: 20080703
  Serious: Yes (Other)
  Sender: FDA-Public Use
  Company Number: GB-TEVA-166649ISR

PATIENT
  Age: 30 Year
  Sex: Female

DRUGS (2)
  1. FLUOXETINE [Suspect]
     Indication: DEPRESSION
     Route: 048
     Dates: start: 20060101
  2. ETONOGESTREL [Suspect]
     Dates: start: 20041201, end: 20070901

REACTIONS (2)
  - DRUG INTERACTION [None]
  - ECTOPIC PREGNANCY [None]
